FAERS Safety Report 8581610-7 (Version None)
Quarter: 2012Q3

REPORT INFORMATION
  Report Type: 
  Country: None (occurrence: None)
  Receive Date: 20120801
  Receipt Date: 20120801
  Transmission Date: 20120928
  Serious: No
  Sender: FDA-Public Use
  Company Number: None

PATIENT
  Age: 55 Year
  Sex: Female
  Weight: 90.7194 kg

DRUGS (1)
  1. VERAPAMIL [Suspect]
     Indication: VENTRICULAR ARRHYTHMIA
     Dosage: 120 MG DAILY PO
     Route: 048
     Dates: start: 20120717, end: 20120719

REACTIONS (6)
  - HEADACHE [None]
  - CONDITION AGGRAVATED [None]
  - VENTRICULAR ARRHYTHMIA [None]
  - FATIGUE [None]
  - PRODUCT SUBSTITUTION ISSUE [None]
  - NAUSEA [None]
